FAERS Safety Report 7413055-7 (Version None)
Quarter: 2011Q2

REPORT INFORMATION
  Report Type: 
  Country: None (occurrence: None)
  Receive Date: 20110413
  Receipt Date: 20110406
  Transmission Date: 20111010
  Serious: Yes (Other)
  Sender: FDA-Public Use
  Company Number: GB-TEVA-263356ISR

PATIENT
  Age: 63 Year
  Sex: Male
  Weight: 124 kg

DRUGS (3)
  1. RANOLAZINE [Interacting]
     Indication: ANGINA PECTORIS
     Route: 048
     Dates: start: 20101122, end: 20101216
  2. RANOLAZINE [Interacting]
     Indication: CHEST PAIN
  3. WARFARIN [Suspect]
     Indication: ATRIAL FIBRILLATION
     Route: 048
     Dates: start: 20050101

REACTIONS (2)
  - DRUG INTERACTION [None]
  - INTERNATIONAL NORMALISED RATIO INCREASED [None]
